FAERS Safety Report 4609669-X (Version None)
Quarter: 2005Q1

REPORT INFORMATION
  Report Type: 
  Country: None (occurrence: None)
  Receive Date: 20050316
  Receipt Date: 20041215
  Transmission Date: 20050727
  Serious: Yes (Other)
  Sender: FDA-Public Use
  Company Number: US-GLAXOSMITHKLINE-A0537452A

PATIENT
  Age: 78 Year
  Sex: Male

DRUGS (2)
  1. ADVAIR DISKUS 100/50 [Suspect]
     Indication: ASTHMA
     Route: 055
  2. OCUVITE [Concomitant]
     Indication: MACULOPATHY
     Route: 048

REACTIONS (4)
  - MACULAR DEGENERATION [None]
  - VISION BLURRED [None]
  - VITREOUS DETACHMENT [None]
  - VITREOUS FLOATERS [None]
